FAERS Safety Report 6048479-6 (Version None)
Quarter: 2009Q1

REPORT INFORMATION
  Report Type: 
  Country: None (occurrence: None)
  Receive Date: 20090123
  Receipt Date: 20090116
  Transmission Date: 20090719
  Serious: Yes (Hospitalization)
  Sender: FDA-Public Use
  Company Number: A0764860A

PATIENT
  Age: 55 Year
  Sex: Male
  Weight: 115.9 kg

DRUGS (3)
  1. AVANDIA [Suspect]
     Dosage: 4MG TWICE PER DAY
     Route: 065
     Dates: start: 20020101, end: 20070901
  2. GLUCOPHAGE [Concomitant]
     Dates: start: 20000101, end: 20070101
  3. METFORMIN [Concomitant]
     Dates: start: 19900101, end: 20070101

REACTIONS (4)
  - CARDIAC DISORDER [None]
  - HYPERTENSION [None]
  - MYOCARDIAL INFARCTION [None]
  - PERIPHERAL VASCULAR DISORDER [None]
